FAERS Safety Report 16364969 (Version 2)
Quarter: 2019Q2

REPORT INFORMATION
  Report Type: Spontaneous
  Country: IE (occurrence: IE)
  Receive Date: 20190529
  Receipt Date: 20190606
  Transmission Date: 20190711
  Serious: Yes (Hospitalization)
  Sender: FDA-Public Use
  Company Number: IE-UNICHEM PHARMACEUTICALS (USA) INC-UCM201905-000179

PATIENT
  Age: 43 Year
  Sex: Female

DRUGS (3)
  1. LOSARTAN. [Suspect]
     Active Substance: LOSARTAN
     Indication: HYPERTENSION
  2. MORPHINE [Concomitant]
     Active Substance: MORPHINE
     Indication: PAIN
     Route: 042
  3. KETAMINE [Concomitant]
     Active Substance: KETAMINE
     Indication: PAIN
     Route: 042

REACTIONS (2)
  - Rhabdomyolysis [Recovering/Resolving]
  - Compartment syndrome [Recovering/Resolving]
